FAERS Safety Report 13027996 (Version 1)
Quarter: 2016Q4

REPORT INFORMATION
  Report Type: Spontaneous
  Country: US (occurrence: US)
  Receive Date: 20161214
  Receipt Date: 20161214
  Transmission Date: 20170207
  Serious: No
  Sender: FDA-Public Use
  Company Number: US-SHIRE-US201618326

PATIENT
  Age: 69 Year
  Sex: Female
  Weight: 65.76 kg

DRUGS (1)
  1. XIIDRA [Suspect]
     Active Substance: LIFITEGRAST
     Indication: DRY EYE
     Dosage: 1 GTT BOTH EYES, 2X/DAY:BID
     Route: 047
     Dates: start: 201609, end: 20161119

REACTIONS (8)
  - Skin discomfort [Recovered/Resolved]
  - Eye swelling [Recovered/Resolved]
  - Instillation site pruritus [Recovered/Resolved]
  - Dry eye [Recovered/Resolved]
  - Ocular hyperaemia [Recovered/Resolved]
  - Instillation site pain [Recovered/Resolved]
  - Adverse event [Recovered/Resolved]
  - Conjunctivitis [Recovered/Resolved]

NARRATIVE: CASE EVENT DATE: 201609
